FAERS Safety Report 4768967-X (Version None)
Quarter: 2005Q3

REPORT INFORMATION
  Report Type: 
  Country: None (occurrence: None)
  Receive Date: 20050914
  Receipt Date: 20050902
  Transmission Date: 20060218
  Serious: Yes (Other)
  Sender: FDA-Public Use
  Company Number: 2005123943

PATIENT
  Sex: Female

DRUGS (1)
  1. MEDROXYPROGESTERONE ACETATE [Suspect]
     Indication: MENORRHAGIA
     Dosage: INTRAMUSCULAR; FOR YEARS
     Route: 030

REACTIONS (2)
  - ANORECTAL DISORDER [None]
  - THROMBOSIS [None]
